FAERS Safety Report 8343973-7 (Version None)
Quarter: 2012Q2

REPORT INFORMATION
  Report Type: 
  Country: None (occurrence: None)
  Receive Date: 20120508
  Receipt Date: 20120507
  Transmission Date: 20120825
  Serious: Yes (Death)
  Sender: FDA-Public Use
  Company Number: US-BAYER-2012-044337

PATIENT
  Age: 66 Year
  Sex: Male

DRUGS (1)
  1. BETASERON [Suspect]
     Dosage: 0.25 MG QOD
     Route: 058
     Dates: start: 20081002

REACTIONS (1)
  - DEATH [None]
